FAERS Safety Report 5475342-1 (Version None)
Quarter: 2007Q4

REPORT INFORMATION
  Report Type: 
  Country: None (occurrence: None)
  Receive Date: 20071001
  Receipt Date: 20070919
  Transmission Date: 20080405
  Serious: Yes (Disabling)
  Sender: FDA-Public Use
  Company Number: 2007-04274

PATIENT
  Age: 46 Year
  Sex: Female

DRUGS (1)
  1. TRELSTAR DEPOT [Suspect]
     Indication: HORMONE SUPPRESSION THERAPY
     Dosage: 3.75 MG, SINGLE, INTRAMUSCULAR
     Route: 030
     Dates: start: 20070810, end: 20070810

REACTIONS (4)
  - COMPLEX PARTIAL SEIZURES [None]
  - CONDITION AGGRAVATED [None]
  - CONVULSION [None]
  - GRAND MAL CONVULSION [None]
